FAERS Safety Report 5852328-6 (Version None)
Quarter: 2008Q3

REPORT INFORMATION
  Report Type: 
  Country: None (occurrence: None)
  Receive Date: 20080821
  Receipt Date: 20080815
  Transmission Date: 20090109
  Serious: Yes (Other)
  Sender: FDA-Public Use
  Company Number: PHHY2008BR18129

PATIENT
  Age: 20 Year
  Sex: Female

DRUGS (3)
  1. TEGRETOL [Suspect]
     Indication: BIPOLAR DISORDER
     Dosage: 200 MG, FOR ONE MONTH
     Route: 048
  2. MELLERIL ^SANDOZ^ [Suspect]
     Indication: BIPOLAR DISORDER
     Dosage: 100 MG, FOR 1 MONTH
  3. RIVOTRIL [Suspect]
     Indication: BIPOLAR DISORDER
     Dosage: 1 MG, FOR ONE MONTH

REACTIONS (4)
  - ABNORMAL BEHAVIOUR [None]
  - AGGRESSION [None]
  - AGITATION [None]
  - TREATMENT NONCOMPLIANCE [None]
